FAERS Safety Report 10044597 (Version 2)
Quarter: 2015Q2

REPORT INFORMATION
  Report Type: Spontaneous
  Country: US (occurrence: US)
  Receive Date: 20140328
  Receipt Date: 20150417
  Transmission Date: 20150821
  Serious: Yes (Other)
  Sender: FDA-Public Use
  Company Number: US-LUNDBECK-DKLU1098503

PATIENT
  Sex: Female
  Weight: 10 kg

DRUGS (2)
  1. SABRIL [Suspect]
     Active Substance: VIGABATRIN
     Indication: INFANTILE SPASMS
     Dates: start: 20140210
  2. SABRIL [Suspect]
     Active Substance: VIGABATRIN

REACTIONS (2)
  - Muscle spasms [Recovered/Resolved]
  - Seizure [Recovered/Resolved]
